FAERS Safety Report 7337995-2 (Version None)
Quarter: 2011Q1

REPORT INFORMATION
  Report Type: 
  Country: None (occurrence: None)
  Receive Date: 20110308
  Receipt Date: 20110224
  Transmission Date: 20110831
  Serious: Yes (Hospitalization)
  Sender: FDA-Public Use
  Company Number: US-JNJFOC-20110207180

PATIENT
  Sex: Female
  Weight: 108 kg

DRUGS (12)
  1. GOLIMUMAB [Suspect]
     Route: 058
  2. PREDNISONE [Concomitant]
     Route: 048
  3. NEXIUM [Concomitant]
     Route: 048
  4. GOLIMUMAB [Suspect]
     Indication: RHEUMATOID ARTHRITIS
     Route: 058
  5. PLACEBO [Suspect]
     Indication: RHEUMATOID ARTHRITIS
     Route: 058
  6. AMITRIPTYLINE [Concomitant]
     Route: 048
  7. LORCET-HD [Concomitant]
     Route: 048
  8. FOLIC ACID [Concomitant]
     Route: 048
  9. VICODIN [Concomitant]
     Route: 048
  10. LORA TAB [Concomitant]
     Route: 048
  11. VOLTAREN [Concomitant]
     Route: 048
  12. URSODIOL [Concomitant]
     Route: 048

REACTIONS (1)
  - ABSCESS [None]
